FAERS Safety Report 4578181-9 (Version None)
Quarter: 2005Q1

REPORT INFORMATION
  Report Type: 
  Country: None (occurrence: None)
  Receive Date: 20050203
  Receipt Date: 20050203
  Transmission Date: 20050727
  Serious: No
  Sender: FDA-Public Use
  Company Number: None

PATIENT
  Age: 30 Year
  Sex: Male

DRUGS (1)
  1. HURRICAINE SPRAY [Suspect]
     Indication: ANAESTHESIA

REACTIONS (1)
  - METHAEMOGLOBINAEMIA [None]
